FAERS Safety Report 12526355 (Version 2)
Quarter: 2016Q3

REPORT INFORMATION
  Report Type: Spontaneous
  Country: US (occurrence: US)
  Receive Date: 20160705
  Receipt Date: 20160706
  Transmission Date: 20161109
  Serious: Yes (Other)
  Sender: FDA-Public Use
  Company Number: US-PFIZER INC-2015314725

PATIENT
  Age: 61 Year
  Sex: Female

DRUGS (2)
  1. LYRICA [Suspect]
     Active Substance: PREGABALIN
     Indication: FIBROMYALGIA
     Dosage: 200 MG, 2X/DAY  (200 MGS A.M. AND 200 MGS P.M.)
  2. LYRICA [Suspect]
     Active Substance: PREGABALIN
     Dosage: 150 MG, 2X/DAY (150 MGS A.M., 150 MGS P.M. (VIA 75 MG CAPSULES))
     Route: 048

REACTIONS (16)
  - Anxiety [Unknown]
  - Influenza like illness [Unknown]
  - Irritability [Unknown]
  - Suicidal ideation [Unknown]
  - Headache [Unknown]
  - Arthralgia [Unknown]
  - Panic attack [Unknown]
  - Insomnia [Unknown]
  - Fatigue [Unknown]
  - Nausea [Unknown]
  - Depression [Unknown]
  - Drug ineffective [Unknown]
  - Feeling of body temperature change [Unknown]
  - Restlessness [Unknown]
  - Dizziness [Unknown]
  - Myalgia [Unknown]
